FAERS Safety Report 8553109-5 (Version None)
Quarter: 2012Q3

REPORT INFORMATION
  Report Type: 
  Country: None (occurrence: None)
  Receive Date: 20120731
  Receipt Date: 20120725
  Transmission Date: 20120928
  Serious: Yes (Death, Hospitalization)
  Sender: FDA-Public Use
  Company Number: ES-SANOFI-AVENTIS-2012SA052980

PATIENT
  Age: 68 Year
  Sex: Male
  Weight: 53 kg

DRUGS (9)
  1. OMEPRAZOLE [Concomitant]
  2. RESINCALCIO [Concomitant]
  3. CISPLATIN [Suspect]
     Route: 042
     Dates: start: 20120508, end: 20120703
  4. ASPIRIN [Concomitant]
  5. LORMETAZEPAM [Concomitant]
  6. DOCETAXEL [Suspect]
     Indication: NON-SMALL CELL LUNG CANCER
     Route: 042
     Dates: start: 20120508, end: 20120703
  7. HIDROFEROL [Concomitant]
  8. FOLIC ACID [Concomitant]
  9. PARICALCITOL [Concomitant]

REACTIONS (7)
  - HYPERKALAEMIA [None]
  - HYPONATRAEMIA [None]
  - FEBRILE NEUTROPENIA [None]
  - CARDIAC FAILURE [None]
  - THROMBOCYTOPENIA [None]
  - MUCOSAL INFLAMMATION [None]
  - RENAL FAILURE [None]
